FAERS Safety Report 10511337 (Version 1)
Quarter: 2014Q4

REPORT INFORMATION
  Report Type: Spontaneous
  Country: IT (occurrence: None)
  Receive Date: 20141008
  Receipt Date: 20141008
  Transmission Date: 20150528
  Serious: Yes (Other)
  Sender: FDA-Public Use
  Company Number: 2556877

PATIENT
  Age: 39 Year
  Sex: Female

DRUGS (3)
  1. OXALIPLATIN. [Suspect]
     Active Substance: OXALIPLATIN
     Indication: HODGKIN^S DISEASE
     Dosage: 195 MG, MILLIGRAM(S), CYCLICAL, INTRAVNEOUS
     Route: 042
     Dates: start: 20140818, end: 20140819
  2. HOLOXAN [Suspect]
     Active Substance: IFOSFAMIDE
     Indication: HODGKIN^S DISEASE
     Dosage: 7500 MG MILLIGRAM(S), CYCLICAL, INTRAVNEOUS
     Route: 041
     Dates: start: 20140818, end: 20140919
  3. UROMITEXAN [Suspect]
     Active Substance: MESNA
     Indication: HODGKIN^S DISEASE
     Dosage: 8000 MG MILLIGRAM(S), CYCLICAL, INTRAVENOUS
     Route: 041
     Dates: start: 20140818, end: 20140919

REACTIONS (3)
  - Eye pruritus [None]
  - Nausea [None]
  - Throat tightness [None]

NARRATIVE: CASE EVENT DATE: 20140919
